FAERS Safety Report 5855746-5 (Version None)
Quarter: 2008Q3

REPORT INFORMATION
  Report Type: 
  Country: None (occurrence: None)
  Receive Date: 20080825
  Receipt Date: 20080818
  Transmission Date: 20090109
  Serious: Yes (Other)
  Sender: FDA-Public Use
  Company Number: GB-ELI_LILLY_AND_COMPANY-GB200808003737

PATIENT
  Age: 54 Year
  Sex: Male

DRUGS (4)
  1. ZYPREXA [Suspect]
     Indication: SCHIZOPHRENIA
     Dosage: 10 MG, 2/D
  2. CLOPIXOL [Concomitant]
     Dosage: 300 MG, OTHER
  3. PROCYCLIDINE HYDROCHLORIDE 2MG TAB [Concomitant]
     Dosage: 5 MG, OTHER
  4. FLUOXETINE [Concomitant]
     Dosage: 20 MG, UNK

REACTIONS (1)
  - MONOPARESIS [None]
